FAERS Safety Report 8907493 (Version 2)
Quarter: 2013Q4

REPORT INFORMATION
  Report Type: Spontaneous
  Country: US (occurrence: US)
  Receive Date: 20121114
  Receipt Date: 20131008
  Transmission Date: 20140711
  Serious: Yes (Other)
  Sender: FDA-Public Use
  Company Number: US-PFIZER INC-2012281074

PATIENT
  Age: 77 Year
  Sex: Female
  Weight: 70.3 kg

DRUGS (2)
  1. REVATIO [Suspect]
     Indication: PULMONARY HYPERTENSION
     Dosage: 20 MG, 3X/DAY
     Dates: start: 20121017
  2. OXYGEN [Concomitant]
     Indication: LUNG DISORDER
     Dosage: UNK

REACTIONS (1)
  - Eyelid oedema [Unknown]
